FAERS Safety Report 10086924 (Version 1)
Quarter: 2014Q2

REPORT INFORMATION
  Report Type: Report from Study
  Country: BR (occurrence: BR)
  Receive Date: 20140418
  Receipt Date: 20140418
  Transmission Date: 20141212
  Serious: Yes (Other)
  Sender: FDA-Public Use
  Company Number: PHHY2014BR045787

PATIENT
  Sex: Male
  Weight: 80 kg

DRUGS (4)
  1. SANDOSTATIN LAR [Suspect]
     Indication: ACROMEGALY
     Dosage: UNK 1 APPLICATION, EVERY 28 DAYS
  2. DIOVAN [Concomitant]
     Indication: HYPERTENSION
     Dosage: 2 DF, DAILY
  3. ENALAPRIL [Concomitant]
     Indication: HYPERTENSION
     Dosage: 2 DF, UNK
  4. HYDROCHLORTHIAZID [Concomitant]
     Indication: HYPERTENSION
     Dosage: 2 DF, DAILY

REACTIONS (8)
  - Polyp [Recovered/Resolved]
  - Intestinal haemorrhage [Recovered/Resolved]
  - Pain in extremity [Not Recovered/Not Resolved]
  - Musculoskeletal pain [Not Recovered/Not Resolved]
  - Sarcopenia [Not Recovered/Not Resolved]
  - Visual impairment [Not Recovered/Not Resolved]
  - Bradycardia [Not Recovered/Not Resolved]
  - Muscle atrophy [Not Recovered/Not Resolved]
